FAERS Safety Report 16993388 (Version 5)
Quarter: 2021Q1

REPORT INFORMATION
  Report Type: Spontaneous
  Country: DE (occurrence: DE)
  Receive Date: 20191105
  Receipt Date: 20210317
  Transmission Date: 20210419
  Serious: Yes (Death, Hospitalization, Other)
  Sender: FDA-Public Use
  Company Number: DE-AUROBINDO-AUR-APL-2019-070263

PATIENT
  Sex: Female
  Weight: 78 kg

DRUGS (4)
  1. AMLODIPINE [Suspect]
     Active Substance: AMLODIPINE BESYLATE
     Indication: HYPERTENSION
     Dosage: 5 MILLIGRAM, ONCE A DAY
     Route: 048
     Dates: start: 2019, end: 20191023
  2. KISQALI [Suspect]
     Active Substance: RIBOCICLIB
     Indication: BREAST CANCER METASTATIC
     Dosage: 400 MILLIGRAM, ONCE A DAY, (21 DAYS INTAKE, 7 DAYS PAUSE)
     Route: 048
     Dates: start: 20190823, end: 20191010
  3. LETROZOLE. [Suspect]
     Active Substance: LETROZOLE
     Indication: BREAST CANCER METASTATIC
     Dosage: 2.5 MILLIGRAM, ONCE A DAY
     Route: 048
     Dates: start: 20190820
  4. IBANDRONATE [Concomitant]
     Active Substance: IBANDRONATE SODIUM
     Indication: PRODUCT USED FOR UNKNOWN INDICATION
     Dosage: UNK
     Route: 065

REACTIONS (11)
  - Cystitis [Recovered/Resolved]
  - Neutropenia [Recovering/Resolving]
  - Decreased appetite [Unknown]
  - Pyrexia [Recovered/Resolved]
  - Eastern Cooperative Oncology Group performance status worsened [Not Recovered/Not Resolved]
  - Death [Fatal]
  - Thrombocytopenia [Recovering/Resolving]
  - Hypotension [Recovered/Resolved]
  - Anaemia [Recovered/Resolved]
  - Leukopenia [Not Recovered/Not Resolved]
  - Chills [Recovered/Resolved]

NARRATIVE: CASE EVENT DATE: 20190820
